FAERS Safety Report 8555376-0 (Version None)
Quarter: 2012Q3

REPORT INFORMATION
  Report Type: 
  Country: None (occurrence: None)
  Receive Date: 20120731
  Receipt Date: 20110921
  Transmission Date: 20120928
  Serious: No
  Sender: FDA-Public Use
  Company Number: US-ASTRAZENECA-2011SE37262

PATIENT
  Age: 56 Year
  Sex: Male
  Weight: 97.5 kg

DRUGS (14)
  1. LISINOPRIL [Concomitant]
  2. KLONOPIN [Concomitant]
  3. NORVASC [Concomitant]
  4. TEGRETOL [Concomitant]
  5. FLOMAX [Concomitant]
  6. LEXAPRO [Concomitant]
  7. CIPROFLOXACIN HCL [Concomitant]
  8. METFORMIN HCL [Concomitant]
  9. SEROQUEL [Suspect]
     Indication: BIPOLAR DISORDER
     Route: 048
     Dates: start: 20030101, end: 20110501
  10. WELLBUTRIN SR [Concomitant]
  11. CITALOPRAM HYDROBROMIDE [Concomitant]
  12. SEROQUEL [Suspect]
     Indication: TACHYPHRENIA
     Route: 048
     Dates: start: 20030101, end: 20110501
  13. SEROQUEL [Suspect]
     Indication: SCHIZOPHRENIA
     Route: 048
     Dates: start: 20030101, end: 20110501
  14. CRESTOR [Concomitant]

REACTIONS (8)
  - MENTAL IMPAIRMENT [None]
  - TACHYPHRENIA [None]
  - HALLUCINATION [None]
  - OFF LABEL USE [None]
  - SOLILOQUY [None]
  - INSOMNIA [None]
  - WITHDRAWAL SYNDROME [None]
  - DRUG DOSE OMISSION [None]
